FAERS Safety Report 19955491 (Version 4)
Quarter: 2022Q1

REPORT INFORMATION
  Report Type: Report from Study
  Country: JP (occurrence: JP)
  Receive Date: 20211013
  Receipt Date: 20220117
  Transmission Date: 20220423
  Serious: Yes (Death, Other)
  Sender: FDA-Public Use
  Company Number: JP-CELLTRION INC.-2021JP013939

PATIENT

DRUGS (32)
  1. INVESTIGATIONAL BIOSIMILARS [Suspect]
     Active Substance: INVESTIGATIONAL BIOSIMILARS
     Indication: HER2 positive gastric cancer
     Dosage: 440 MILLIGRAM, QD
     Route: 041
     Dates: start: 20200225, end: 20200225
  2. INVESTIGATIONAL BIOSIMILARS [Suspect]
     Active Substance: INVESTIGATIONAL BIOSIMILARS
     Dosage: 340 MILLIGRAM, QD
     Route: 041
     Dates: start: 20200317, end: 20200317
  3. INVESTIGATIONAL BIOSIMILARS [Suspect]
     Active Substance: INVESTIGATIONAL BIOSIMILARS
     Dosage: 340 MILLIGRAM, QD
     Route: 041
     Dates: start: 20200407, end: 20200407
  4. INVESTIGATIONAL BIOSIMILARS [Suspect]
     Active Substance: INVESTIGATIONAL BIOSIMILARS
     Dosage: 340 MILLIGRAM, QD
     Route: 041
     Dates: start: 20200428, end: 20200428
  5. INVESTIGATIONAL BIOSIMILARS [Suspect]
     Active Substance: INVESTIGATIONAL BIOSIMILARS
     Dosage: 340 MILLIGRAM, QD
     Route: 041
     Dates: start: 20200519, end: 20200519
  6. INVESTIGATIONAL BIOSIMILARS [Suspect]
     Active Substance: INVESTIGATIONAL BIOSIMILARS
     Dosage: 340 MILLIGRAM, QD
     Route: 041
     Dates: start: 20200609, end: 20200609
  7. INVESTIGATIONAL BIOSIMILARS [Suspect]
     Active Substance: INVESTIGATIONAL BIOSIMILARS
     Dosage: 340 MILLIGRAM, QD
     Route: 041
     Dates: start: 20200630, end: 20200630
  8. INVESTIGATIONAL BIOSIMILARS [Suspect]
     Active Substance: INVESTIGATIONAL BIOSIMILARS
     Dosage: 340 MILLIGRAM, QD
     Route: 041
     Dates: start: 20200721, end: 20200721
  9. INVESTIGATIONAL BIOSIMILARS [Suspect]
     Active Substance: INVESTIGATIONAL BIOSIMILARS
     Dosage: 404 MILLIGRAM, QD
     Route: 041
     Dates: start: 20200825, end: 20200825
  10. OXALIPLATIN [Suspect]
     Active Substance: OXALIPLATIN
     Indication: HER2 positive gastric cancer
     Dosage: 211 MILLIGRAM, QD
     Route: 041
     Dates: start: 20200225, end: 20200225
  11. OXALIPLATIN [Suspect]
     Active Substance: OXALIPLATIN
     Dosage: 213 MILLIGRAM, QD
     Route: 041
     Dates: start: 20200317, end: 20200317
  12. OXALIPLATIN [Suspect]
     Active Substance: OXALIPLATIN
     Dosage: 213 MILLIGRAM, QD
     Route: 041
     Dates: start: 20200407, end: 20200407
  13. OXALIPLATIN [Suspect]
     Active Substance: OXALIPLATIN
     Dosage: 213 MILLIGRAM, QD
     Route: 041
     Dates: start: 20200428, end: 20200428
  14. OXALIPLATIN [Suspect]
     Active Substance: OXALIPLATIN
     Dosage: 213 MILLIGRAM, QD
     Route: 041
     Dates: start: 20200519, end: 20200519
  15. OXALIPLATIN [Suspect]
     Active Substance: OXALIPLATIN
     Dosage: 213 MILLIGRAM, QD
     Route: 041
     Dates: start: 20200609, end: 20200609
  16. OXALIPLATIN [Suspect]
     Active Substance: OXALIPLATIN
     Dosage: 213 MILLIGRAM, QD
     Route: 041
     Dates: start: 20200630, end: 20200630
  17. OXALIPLATIN [Suspect]
     Active Substance: OXALIPLATIN
     Dosage: 213 MILLIGRAM, QD
     Route: 041
     Dates: start: 20200721, end: 20200721
  18. OXALIPLATIN [Suspect]
     Active Substance: OXALIPLATIN
     Dosage: 183 MILLIGRAM, QD
     Route: 041
     Dates: start: 20200825, end: 20200825
  19. CAPECITABINE [Suspect]
     Active Substance: CAPECITABINE
     Indication: HER2 positive gastric cancer
     Dosage: 3000 MILLIGRAM, QD
     Route: 048
     Dates: start: 20200225, end: 20200310
  20. CAPECITABINE [Suspect]
     Active Substance: CAPECITABINE
     Dosage: 3000 MILLIGRAM, QD
     Route: 048
     Dates: start: 20200317, end: 20200331
  21. CAPECITABINE [Suspect]
     Active Substance: CAPECITABINE
     Dosage: 3000 MILLIGRAM, QD
     Route: 048
     Dates: start: 20200407, end: 20200421
  22. CAPECITABINE [Suspect]
     Active Substance: CAPECITABINE
     Dosage: 3000 MILLIGRAM, QD
     Route: 048
     Dates: start: 20200428, end: 20200512
  23. CAPECITABINE [Suspect]
     Active Substance: CAPECITABINE
     Dosage: 3000 MILLIGRAM, QD
     Route: 048
     Dates: start: 20200519, end: 20200602
  24. CAPECITABINE [Suspect]
     Active Substance: CAPECITABINE
     Dosage: 3000 MILLIGRAM, QD
     Route: 048
     Dates: start: 20200609, end: 20200623
  25. CAPECITABINE [Suspect]
     Active Substance: CAPECITABINE
     Dosage: 3000 MILLIGRAM, QD
     Route: 048
     Dates: start: 20200630, end: 20200714
  26. CAPECITABINE [Suspect]
     Active Substance: CAPECITABINE
     Dosage: 3000 MILLIGRAM, QD
     Route: 048
     Dates: start: 20200721, end: 20200804
  27. CAPECITABINE [Suspect]
     Active Substance: CAPECITABINE
     Dosage: 3000 MILLIGRAM, QD
     Route: 048
     Dates: start: 20200825, end: 20200908
  28. EMEND [Concomitant]
     Active Substance: APREPITANT
     Indication: Prophylaxis of nausea and vomiting
     Dosage: UNK
     Dates: start: 20200225, end: 20200519
  29. DECADRON [Concomitant]
     Active Substance: DEXAMETHASONE
     Indication: Prophylaxis of nausea and vomiting
     Dosage: UNK
     Dates: start: 20200225, end: 20200827
  30. AMINO ACIDS\CARBOHYDRATES\MINERALS\SOYBEAN OIL\VITAMINS [Concomitant]
     Active Substance: AMINO ACIDS\CARBOHYDRATES\MINERALS\SOYBEAN OIL\VITAMINS
     Indication: Decreased appetite
     Dosage: UNK
     Dates: start: 20200428, end: 20200914
  31. AMINO ACIDS\DEXTROSE\ELECTROLYTES NOS\SOYBEAN OIL\VITAMINS [Concomitant]
     Active Substance: AMINO ACIDS\DEXTROSE\ELECTROLYTES NOS\SOYBEAN OIL\VITAMINS
     Indication: Decreased appetite
     Dosage: UNK
     Dates: start: 20200428, end: 20200518
  32. SODIUM FERROUS CITRATE [Concomitant]
     Active Substance: SODIUM FERROUS CITRATE
     Indication: Anaemia
     Dosage: UNK
     Dates: start: 20200825, end: 20200928

REACTIONS (14)
  - HER2 positive gastric cancer [Fatal]
  - Ascites [Not Recovered/Not Resolved]
  - Vascular pain [Recovered/Resolved]
  - Blood creatinine increased [Recovered/Resolved]
  - Eczema [Recovering/Resolving]
  - Diarrhoea [Recovered/Resolved]
  - Nausea [Recovered/Resolved]
  - White blood cell count decreased [Recovered/Resolved]
  - Neutrophil count decreased [Recovered/Resolved]
  - Anaemia [Not Recovered/Not Resolved]
  - Oedema [Not Recovered/Not Resolved]
  - Malaise [Not Recovered/Not Resolved]
  - Platelet count decreased [Recovered/Resolved]
  - Overdose [Unknown]

NARRATIVE: CASE EVENT DATE: 20200225
